FAERS Safety Report 12435298 (Version 1)
Quarter: 2016Q2

REPORT INFORMATION
  Report Type: Spontaneous
  Country: US (occurrence: US)
  Receive Date: 20160603
  Receipt Date: 20160603
  Transmission Date: 20160815
  Serious: No
  Sender: FDA-Public Use
  Company Number: US-ROCHE-1581944

PATIENT
  Sex: Male

DRUGS (1)
  1. XELODA [Suspect]
     Active Substance: CAPECITABINE
     Indication: NEOPLASM MALIGNANT
     Dosage: 14 DAYS ON
     Route: 048
     Dates: start: 20150304

REACTIONS (3)
  - Dehydration [Unknown]
  - Asthenia [Unknown]
  - Fatigue [Unknown]
